FAERS Safety Report 17055240 (Version 1)
Quarter: 2019Q4

REPORT INFORMATION
  Report Type: Report from Study
  Country: US (occurrence: US)
  Receive Date: 20191120
  Receipt Date: 20191120
  Transmission Date: 20200122
  Serious: Yes (Other)
  Sender: FDA-Public Use
  Company Number: US-JAZZ-2019-US-007975

PATIENT
  Age: 21 Year
  Sex: Female

DRUGS (1)
  1. DEFITELIO [Suspect]
     Active Substance: DEFIBROTIDE SODIUM
     Indication: PROPHYLAXIS
     Dosage: 6.25MG/KG Q6 FOR 2-3 WEEKS

REACTIONS (3)
  - Off label use [Unknown]
  - Pulmonary haemorrhage [Recovered/Resolved]
  - Venoocclusive disease [Recovered/Resolved]
